FAERS Safety Report 14608533 (Version 1)
Quarter: 2018Q1

REPORT INFORMATION
  Report Type: Spontaneous
  Country: GB (occurrence: GB)
  Receive Date: 20180307
  Receipt Date: 20180307
  Transmission Date: 20180509
  Serious: Yes (Other)
  Sender: FDA-Public Use
  Company Number: GB-ELI_LILLY_AND_COMPANY-GB201802012619

PATIENT
  Age: 93 Year
  Sex: Female

DRUGS (25)
  1. DULOXETINE HYDROCHLORIDE. [Suspect]
     Active Substance: DULOXETINE HYDROCHLORIDE
     Indication: PRODUCT USED FOR UNKNOWN INDICATION
     Dosage: 60 MG, UNKNOWN
     Route: 048
  2. RAMIPRIL. [Concomitant]
     Active Substance: RAMIPRIL
     Dosage: UNK, UNKNOWN
  3. COCODAMOL [Concomitant]
     Active Substance: ACETAMINOPHEN\CODEINE PHOSPHATE
     Dosage: UNK, UNKNOWN
  4. TAMIFLU [Concomitant]
     Active Substance: OSELTAMIVIR PHOSPHATE
     Dosage: UNK, UNKNOWN
  5. HUMAN ACTRAPID [Concomitant]
     Active Substance: INSULIN HUMAN
     Dosage: UNK, UNKNOWN
  6. ONDANSETRON [Concomitant]
     Active Substance: ONDANSETRON
     Dosage: UNK, UNKNOWN
  7. DICLOFENAC SODIUM. [Concomitant]
     Active Substance: DICLOFENAC SODIUM
     Dosage: UNK, UNKNOWN
  8. CYCLIZINE [Concomitant]
     Active Substance: CYCLIZINE
     Dosage: UNK, UNKNOWN
  9. ACETYLSALICYLIC ACID [Concomitant]
     Active Substance: ASPIRIN
     Dosage: UNK, UNKNOWN
  10. LAXIDO [Concomitant]
     Active Substance: POLYETHYLENE GLYCOL 3350\POTASSIUM CHLORIDE\SODIUM BICARBONATE\SODIUM CHLORIDE
     Dosage: UNK, UNKNOWN
  11. ERTAPENEM. [Concomitant]
     Active Substance: ERTAPENEM SODIUM
     Dosage: UNK, UNKNOWN
  12. BISOPROLOL [Concomitant]
     Active Substance: BISOPROLOL
     Dosage: UNK, UNKNOWN
  13. RANITIDINE. [Concomitant]
     Active Substance: RANITIDINE
     Dosage: UNK, UNKNOWN
  14. METFORMIN [Concomitant]
     Active Substance: METFORMIN HYDROCHLORIDE
     Dosage: UNK, UNKNOWN
  15. GLYCERYL TRINITRATE [Concomitant]
     Active Substance: NITROGLYCERIN
     Dosage: 400 UG, UNKNOWN
     Route: 060
  16. MORPHINE SULFATE. [Concomitant]
     Active Substance: MORPHINE SULFATE
     Dosage: UNK, UNKNOWN
  17. DIGOXIN. [Concomitant]
     Active Substance: DIGOXIN
     Dosage: UNK, UNKNOWN
  18. LEVOTHYROXINE. [Concomitant]
     Active Substance: LEVOTHYROXINE
     Dosage: UNK, UNKNOWN
  19. CANDESARTAN. [Concomitant]
     Active Substance: CANDESARTAN
     Dosage: UNK, UNKNOWN
  20. CLOPIDOGREL [Concomitant]
     Active Substance: CLOPIDOGREL BISULFATE
     Dosage: UNK, UNKNOWN
  21. SOLIFENACIN [Concomitant]
     Active Substance: SOLIFENACIN
     Dosage: UNK, UNKNOWN
  22. DONEPEZIL. [Concomitant]
     Active Substance: DONEPEZIL
     Dosage: UNK, UNKNOWN
  23. ISOSORBID-5-MONONITRAT [Concomitant]
     Dosage: UNK UNK, UNKNOWN
  24. ENOXAPARIN [Concomitant]
     Active Substance: ENOXAPARIN
     Dosage: UNK, UNKNOWN
  25. NYSTATIN. [Concomitant]
     Active Substance: NYSTATIN
     Dosage: UNK, UNKNOWN

REACTIONS (2)
  - Alanine aminotransferase increased [Recovering/Resolving]
  - Aspartate aminotransferase increased [Recovering/Resolving]
